FAERS Safety Report 13657672 (Version 1)
Quarter: 2017Q2

REPORT INFORMATION
  Report Type: Spontaneous
  Country: US (occurrence: US)
  Receive Date: 20170615
  Receipt Date: 20170615
  Transmission Date: 20170830
  Serious: No
  Sender: FDA-Public Use
  Company Number: US-GILEAD-2017-0278327

PATIENT
  Age: 63 Year
  Sex: Male

DRUGS (4)
  1. ISOSORBIDE                         /07346401/ [Concomitant]
  2. RANEXA [Suspect]
     Active Substance: RANOLAZINE
     Indication: PRODUCT USED FOR UNKNOWN INDICATION
     Dosage: UNK
     Route: 065
  3. TRAZODONE [Concomitant]
     Active Substance: TRAZODONE HYDROCHLORIDE
  4. DULOXETINE. [Concomitant]
     Active Substance: DULOXETINE

REACTIONS (4)
  - Chest pain [Not Recovered/Not Resolved]
  - Vertigo [Recovered/Resolved]
  - Intentional dose omission [Not Recovered/Not Resolved]
  - Dizziness [Recovered/Resolved]
